FAERS Safety Report 8614767-X (Version None)
Quarter: 2012Q3

REPORT INFORMATION
  Report Type: 
  Country: None (occurrence: None)
  Receive Date: 20120823
  Receipt Date: 20120817
  Transmission Date: 20120928
  Serious: Yes (Hospitalization, Other)
  Sender: FDA-Public Use
  Company Number: US-PFIZER INC-2012202714

PATIENT
  Age: 56 Year
  Sex: Female
  Weight: 77.1 kg

DRUGS (6)
  1. KLONOPIN [Concomitant]
     Dosage: 0.5 MG, 2X/DAY
  2. LYRICA [Suspect]
     Indication: PAIN
  3. TIZANIDINE [Concomitant]
     Dosage: 4 MG, 3X/DAY
  4. LYRICA [Suspect]
     Indication: FIBROMYALGIA
     Dosage: 200 MG, 2X/DAY
     Route: 048
  5. MORPHINE [Concomitant]
     Dosage: 15MG AS NEEDED AND 30MG TWO TIMES A DAY
  6. LYRICA [Suspect]
     Indication: MUSCULOSKELETAL DISORDER

REACTIONS (2)
  - STAPHYLOCOCCAL INFECTION [None]
  - CELLULITIS [None]
